FAERS Safety Report 5116742-9 (Version None)
Quarter: 2006Q3

REPORT INFORMATION
  Report Type: 
  Country: None (occurrence: None)
  Receive Date: 20060928
  Receipt Date: 20060925
  Transmission Date: 20061208
  Serious: Yes (Other)
  Sender: FDA-Public Use
  Company Number: US-MERCK-0609USA05895

PATIENT
  Age: 82 Year
  Sex: Male

DRUGS (9)
  1. FOSAMAX [Suspect]
     Indication: OSTEOPOROSIS
     Route: 048
     Dates: start: 20050501, end: 20050101
  2. FOSAMAX [Suspect]
     Route: 048
     Dates: start: 20050101, end: 20051201
  3. COUMADIN [Concomitant]
     Route: 065
  4. METOPROLOL TARTRATE [Concomitant]
     Route: 065
  5. HYDROCHLOROTHIAZIDE [Concomitant]
     Route: 065
  6. CALCIUM (UNSPECIFIED) [Concomitant]
     Route: 065
  7. LISINOPRIL [Concomitant]
     Route: 065
  8. ZOCOR [Concomitant]
     Route: 048
  9. [THERAPY UNSPECIFIED] [Concomitant]
     Route: 065

REACTIONS (3)
  - CEREBROVASCULAR ACCIDENT [None]
  - COORDINATION ABNORMAL [None]
  - MYOCARDIAL INFARCTION [None]
